FAERS Safety Report 24122196 (Version 1)
Quarter: 2024Q3

REPORT INFORMATION
  Report Type: Other
  Country: IN (occurrence: IN)
  Receive Date: 20240722
  Receipt Date: 20240722
  Transmission Date: 20241017
  Serious: Yes (Other)
  Sender: BIONPHARMA
  Company Number: IN-Bion-013490

PATIENT
  Age: 38 Year
  Sex: Female

DRUGS (2)
  1. DEXAMETHASONE [Suspect]
     Active Substance: DEXAMETHASONE
     Indication: Weight increased
  2. CYPROHEPTADINE [Concomitant]
     Active Substance: CYPROHEPTADINE
     Indication: Weight increased

REACTIONS (5)
  - Drug dependence [Unknown]
  - Insomnia [Recovering/Resolving]
  - Anxiety [Recovering/Resolving]
  - Agitation [Recovering/Resolving]
  - Drug abuse [Unknown]
